FAERS Safety Report 8613248-7 (Version None)
Quarter: 2012Q3

REPORT INFORMATION
  Report Type: 
  Country: None (occurrence: None)
  Receive Date: 20120822
  Receipt Date: 20120814
  Transmission Date: 20120928
  Serious: Yes (Other)
  Sender: FDA-Public Use
  Company Number: US-ABBOTT-12P-163-0968385-00

PATIENT
  Sex: Male

DRUGS (1)
  1. LUPRON DEPOT [Suspect]
     Indication: PROSTATE CANCER
     Route: 030
     Dates: start: 20120123

REACTIONS (5)
  - HEADACHE [None]
  - DRY EYE [None]
  - VISION BLURRED [None]
  - DEAFNESS [None]
  - VISUAL IMPAIRMENT [None]
